FAERS Safety Report 6213709-4 (Version None)
Quarter: 2009Q2

REPORT INFORMATION
  Report Type: 
  Country: None (occurrence: None)
  Receive Date: 20090601
  Receipt Date: 20090515
  Transmission Date: 20091009
  Serious: Yes (Hospitalization)
  Sender: FDA-Public Use
  Company Number: 2009050066

PATIENT
  Age: 75 Year
  Sex: Male

DRUGS (10)
  1. TORSEMIDE [Suspect]
     Indication: CARDIAC FAILURE
     Dosage: 20 MG (10 MG, 2 IN 1 D), ORAL
     Route: 048
     Dates: start: 20090101, end: 20090206
  2. LITHIOFOR (POTASSIUM SULFATE) [Suspect]
     Indication: AFFECTIVE DISORDER
     Dosage: 660 MG (330 MG, 2 IN 1 D), ORAL
     Route: 048
     Dates: end: 20090206
  3. ENALAPRIL MALEATE [Suspect]
     Indication: CARDIAC FAILURE
     Dosage: 20 MG (20 MG, 1 IN 1 D), ORAL
     Route: 048
  4. METFORMIN HYDROCHLORIDE [Concomitant]
  5. BUPROPION HCL [Concomitant]
  6. ASS MEPHA (ACETYLSALICYLIC ACID) [Concomitant]
  7. VENLAFAXINE HCL [Concomitant]
  8. PREGABALIN [Concomitant]
  9. TAMSULOSIN HCL [Concomitant]
  10. TRANSIPEG (MACROGOLUM, SODIUM BICARBONATE, POTASSIUM CHLORIDE, SODIUM [Concomitant]

REACTIONS (14)
  - ACUTE PRERENAL FAILURE [None]
  - ANTIPSYCHOTIC DRUG LEVEL INCREASED [None]
  - CLONUS [None]
  - DEPRESSED LEVEL OF CONSCIOUSNESS [None]
  - DIABETES INSIPIDUS [None]
  - DRUG INTERACTION [None]
  - GAZE PALSY [None]
  - GLASGOW COMA SCALE ABNORMAL [None]
  - HYPERKALAEMIA [None]
  - HYPERTONIA [None]
  - MYOCLONUS [None]
  - NEUROLOGICAL DECOMPENSATION [None]
  - PNEUMONIA [None]
  - RENAL FAILURE ACUTE [None]
